FAERS Safety Report 4682555-5 (Version None)
Quarter: 2005Q2

REPORT INFORMATION
  Report Type: 
  Country: None (occurrence: None)
  Receive Date: 20050606
  Receipt Date: 20050310
  Transmission Date: 20051028
  Serious: Yes (Hospitalization, Other)
  Sender: FDA-Public Use
  Company Number: US-MERCK-0503USA02231

PATIENT
  Age: 59 Year
  Sex: Female
  Weight: 82 kg

DRUGS (10)
  1. VIOXX [Suspect]
     Indication: MONARTHRITIS
     Route: 048
     Dates: start: 20040519, end: 20040607
  2. LOVENOX [Concomitant]
     Route: 065
  3. NITROGLYCERIN [Concomitant]
     Route: 065
  4. NEXIUM [Concomitant]
     Route: 065
  5. ZOLOFT [Concomitant]
     Route: 065
  6. ZELNORM [Concomitant]
     Route: 065
  7. CITRUCEL [Concomitant]
     Route: 065
  8. CARAFATE [Concomitant]
     Route: 065
  9. ADVAIR DISKUS 100/50 [Concomitant]
     Route: 065
  10. FLONASE [Concomitant]
     Route: 065

REACTIONS (4)
  - ACUTE MYOCARDIAL INFARCTION [None]
  - EMOTIONAL DISTRESS [None]
  - PULMONARY GRANULOMA [None]
  - TRANSIENT ISCHAEMIC ATTACK [None]
